FAERS Safety Report 11055317 (Version 1)
Quarter: 2015Q2

REPORT INFORMATION
  Report Type: Spontaneous
  Country: US (occurrence: US)
  Receive Date: 20150422
  Receipt Date: 20150422
  Transmission Date: 20150821
  Serious: No
  Sender: FDA-Public Use
  Company Number: US-PFIZER INC-2015129841

PATIENT

DRUGS (3)
  1. FASLODEX [Suspect]
     Active Substance: FULVESTRANT
     Dosage: UNK
  2. IBRANCE [Suspect]
     Active Substance: PALBOCICLIB
     Dosage: 125 MG, CYCLIC
     Dates: start: 201503
  3. LETROZOLE. [Suspect]
     Active Substance: LETROZOLE
     Dosage: UNK

REACTIONS (2)
  - Blood count abnormal [Unknown]
  - Lung disorder [Unknown]
